FAERS Safety Report 8553546-9 (Version None)
Quarter: 2012Q3

REPORT INFORMATION
  Report Type: 
  Country: None (occurrence: None)
  Receive Date: 20120731
  Receipt Date: 20120723
  Transmission Date: 20120928
  Serious: Yes (Other)
  Sender: FDA-Public Use
  Company Number: US-PFIZER INC-2012178780

PATIENT
  Sex: Female

DRUGS (18)
  1. MOBIC [Suspect]
     Dosage: 7.5 MG, UNK
     Dates: start: 20120618
  2. MOXIFLOXACIN [Suspect]
     Dosage: UNK
  3. PROPYLENE GLYCOL [Suspect]
     Dosage: UNK
  4. AMARYL [Suspect]
     Dosage: 4 MG, 2X/DAY
     Dates: start: 20020803
  5. VICODIN [Suspect]
  6. DAYPRO [Suspect]
     Dosage: UNK
  7. PROMETHAZINE HCL [Suspect]
     Indication: NAUSEA
     Dosage: 12.5 MG, UNK
     Route: 048
  8. PATADAY [Suspect]
     Dosage: UNK, DAILY
     Route: 047
     Dates: start: 20101102
  9. ALLEGRA [Suspect]
     Dosage: 60 MG, UNK
  10. PHENERGAN HCL [Suspect]
     Dosage: UNK
  11. CELEBREX [Suspect]
     Dosage: UNK
  12. HYDROMORPHINE HYDROCHLORIDE [Suspect]
     Dosage: UNK
  13. OXYCODONE HCL [Suspect]
     Dosage: UNK
  14. VESICARE [Suspect]
     Dosage: UNK
  15. PRED-G [Suspect]
     Dosage: UNK
  16. LIPITOR [Suspect]
     Dosage: 20 MG, UNK
     Dates: start: 20030527
  17. METFORMIN HCL [Suspect]
     Dosage: 500 MG, 2X/DAY
     Dates: start: 20080724
  18. AVANDIA [Suspect]
     Dosage: 4 MG, 2X/DAY
     Dates: start: 20021008

REACTIONS (1)
  - DRUG HYPERSENSITIVITY [None]
